FAERS Safety Report 7381432-9 (Version None)
Quarter: 2011Q1

REPORT INFORMATION
  Report Type: 
  Country: None (occurrence: None)
  Receive Date: 20110329
  Receipt Date: 20100909
  Transmission Date: 20110831
  Serious: Yes (Hospitalization, Other)
  Sender: FDA-Public Use
  Company Number: US-BAYER-201025810NA

PATIENT
  Sex: Female
  Weight: 90.703 kg

DRUGS (13)
  1. LEXAPRO [Concomitant]
     Indication: DEPRESSION
     Dosage: 20 MG, UNK
     Route: 048
  2. SINGULAIR [Concomitant]
     Indication: MULTIPLE ALLERGIES
     Dosage: 20 MG/D, UNK
     Route: 048
  3. OMEGA COMBINATION [Concomitant]
  4. ASCORBIC ACID [Concomitant]
     Dosage: 1000 MG, UNK
  5. ALBUTEROL [Concomitant]
     Indication: ASTHMA
  6. YAZ [Suspect]
     Indication: PREMENSTRUAL SYNDROME
     Route: 048
     Dates: start: 20070810, end: 20071130
  7. CYMBALTA [Concomitant]
     Indication: DEPRESSION
     Dosage: 20 MG, UNK
  8. PRILOSEC [Concomitant]
     Indication: GASTROOESOPHAGEAL REFLUX DISEASE
     Dosage: 20 MG, UNK
  9. FLONASE [Concomitant]
     Indication: MULTIPLE ALLERGIES
     Route: 045
  10. UNCODEABLE ^UNCLASSIFIABLE^ [Concomitant]
     Dosage: 1200 MG, UNK
  11. YAZ [Suspect]
     Indication: MENOPAUSAL SYMPTOMS
  12. ADVAIR DISKUS 100/50 [Concomitant]
     Indication: ASTHMA
  13. UNCODEABLE ^UNCLASSIFIABLE^ [Concomitant]

REACTIONS (4)
  - PULMONARY EMBOLISM [None]
  - PULMONARY INFARCTION [None]
  - MUSCULOSKELETAL PAIN [None]
  - PLEURISY [None]
